FAERS Safety Report 9418990 (Version 1)
Quarter: 2013Q3

REPORT INFORMATION
  Report Type: Report from Study
  Country: BR (occurrence: BR)
  Receive Date: 20130725
  Receipt Date: 20130725
  Transmission Date: 20140515
  Serious: Yes (Life-Threatening, Other)
  Sender: FDA-Public Use
  Company Number: BR-ROCHE-1252067

PATIENT
  Sex: Male
  Weight: 54 kg

DRUGS (5)
  1. XOLAIR [Suspect]
     Indication: COUGH
     Dosage: SUBSEQUENT THERAPY RECEIVED ON 10/JUL
     Route: 042
  2. ALENIA (BRAZIL) [Concomitant]
  3. LOVASTATINA [Concomitant]
     Route: 065
  4. CLOPIDOGREL [Concomitant]
     Route: 065
  5. HYDROCORTISONE [Concomitant]
     Route: 065

REACTIONS (4)
  - Influenza [Recovering/Resolving]
  - Glaucoma [Recovering/Resolving]
  - Sneezing [Recovering/Resolving]
  - Cough [Recovering/Resolving]
